FAERS Safety Report 14816391 (Version 3)
Quarter: 2018Q4

REPORT INFORMATION
  Report Type: Spontaneous
  Country: US (occurrence: US)
  Receive Date: 20180426
  Receipt Date: 20181121
  Transmission Date: 20190204
  Serious: Yes (Other)
  Sender: FDA-Public Use
  Company Number: US-SHIRE-US201815667

PATIENT
  Age: 65 Year
  Sex: Female
  Weight: 56.69 kg

DRUGS (7)
  1. PENTASA [Suspect]
     Active Substance: MESALAMINE
     Dosage: 500 MG, 4X/DAY:QID
     Route: 048
     Dates: start: 20180201, end: 20180412
  2. LIALDA [Suspect]
     Active Substance: MESALAMINE
     Indication: COLITIS ULCERATIVE
     Dosage: 1.2 G(2 TABLETS), 2X/DAY:BID
     Route: 048
     Dates: start: 20180413, end: 20180413
  3. FOLIC ACID. [Concomitant]
     Active Substance: FOLIC ACID
     Indication: SUPPLEMENTATION THERAPY
  4. PENTASA [Suspect]
     Active Substance: MESALAMINE
     Dosage: 500 MG, 4X/DAY:QID
     Route: 048
     Dates: start: 20180413
  5. VITAMIN C [Concomitant]
     Active Substance: ASCORBIC ACID
     Indication: SUPPLEMENTATION THERAPY
  6. PENTASA [Suspect]
     Active Substance: MESALAMINE
     Indication: COLITIS ULCERATIVE
     Dosage: 500 MG(2 CAPSULES), 3X/DAY:TID
     Route: 048
     Dates: start: 201501, end: 20180201
  7. VITAMIN E [Concomitant]
     Active Substance: .ALPHA.-TOCOPHEROL
     Indication: SUPPLEMENTATION THERAPY

REACTIONS (8)
  - Fatigue [Unknown]
  - Diarrhoea [Recovered/Resolved]
  - Haemorrhage [Recovering/Resolving]
  - Malaise [Unknown]
  - Condition aggravated [Recovering/Resolving]
  - Ill-defined disorder [Unknown]
  - Adverse drug reaction [Unknown]
  - Irritable bowel syndrome [Recovering/Resolving]

NARRATIVE: CASE EVENT DATE: 20180201
